FAERS Safety Report 11912432 (Version 1)
Quarter: 2016Q1

REPORT INFORMATION
  Report Type: Spontaneous
  Country: US (occurrence: US)
  Receive Date: 20160113
  Receipt Date: 20160113
  Transmission Date: 20160526
  Serious: Yes (Death)
  Sender: FDA-Public Use
  Company Number: US-MEDA-2016010063

PATIENT
  Age: 20 Year
  Sex: Male

DRUGS (4)
  1. ALPRAZOLAM. [Suspect]
     Active Substance: ALPRAZOLAM
  2. CARISOPRODOL. [Suspect]
     Active Substance: CARISOPRODOL
  3. OXYCODONE [Suspect]
     Active Substance: OXYCODONE
  4. ETHANOL [Suspect]
     Active Substance: ALCOHOL

REACTIONS (2)
  - Cardio-respiratory arrest [Fatal]
  - Completed suicide [Fatal]

NARRATIVE: CASE EVENT DATE: 2014
